FAERS Safety Report 15903137 (Version 1)
Quarter: 2019Q1

REPORT INFORMATION
  Report Type: Spontaneous
  Country: US (occurrence: US)
  Receive Date: 20190202
  Receipt Date: 20190202
  Transmission Date: 20190417
  Serious: No
  Sender: FDA-Public Use
  Company Number: US-TAKEDA-2019TUS003897

PATIENT
  Sex: Male

DRUGS (4)
  1. HUMIRA [Concomitant]
     Active Substance: ADALIMUMAB
     Dosage: UNK
  2. REMICADE [Concomitant]
     Active Substance: INFLIXIMAB
     Dosage: UNK
  3. STELARA [Concomitant]
     Active Substance: USTEKINUMAB
     Dosage: UNK
  4. ENTYVIO [Suspect]
     Active Substance: VEDOLIZUMAB
     Indication: CROHN^S DISEASE
     Dosage: UNK
     Route: 065

REACTIONS (1)
  - Drug ineffective [Unknown]
